FAERS Safety Report 15812683 (Version 9)
Quarter: 2019Q2

REPORT INFORMATION
  Report Type: Spontaneous
  Country: US (occurrence: US)
  Receive Date: 20190111
  Receipt Date: 20190426
  Transmission Date: 20190711
  Serious: Yes (Hospitalization, Other)
  Sender: FDA-Public Use
  Company Number: US-CELGENEUS-USA-20190100790

PATIENT
  Age: 74 Year
  Sex: Male

DRUGS (2)
  1. REVLIMID [Suspect]
     Active Substance: LENALIDOMIDE
     Indication: PLASMA CELL MYELOMA
     Dosage: 25 MILLIGRAM
     Route: 048
     Dates: start: 20160720
  2. REVLIMID [Suspect]
     Active Substance: LENALIDOMIDE
     Indication: BONE DISORDER

REACTIONS (5)
  - Fluid retention [Not Recovered/Not Resolved]
  - Atrial fibrillation [Recovered/Resolved]
  - Dyspnoea [Not Recovered/Not Resolved]
  - Bronchitis [Recovered/Resolved]
  - Aortic aneurysm [Unknown]

NARRATIVE: CASE EVENT DATE: 201901
